FAERS Safety Report 7570937-3 (Version None)
Quarter: 2011Q2

REPORT INFORMATION
  Report Type: 
  Country: None (occurrence: None)
  Receive Date: 20110622
  Receipt Date: 20110622
  Transmission Date: 20111010
  Serious: Yes (Disabling, Other)
  Sender: FDA-Public Use
  Company Number: None

PATIENT
  Age: 67 Year
  Sex: Female
  Weight: 90.7194 kg

DRUGS (2)
  1. LEVAQUIN [Suspect]
     Indication: PNEUMONIA
     Dosage: 500 MG 2X DAILY HOSPITAL OCT/ IN HOSPITAL
  2. LEVAQUIN [Suspect]
     Dosage: 500 MG 2X DAILY HOME

REACTIONS (8)
  - ARTHROPATHY [None]
  - TENDON DISORDER [None]
  - PAIN IN EXTREMITY [None]
  - VAGINAL INFECTION [None]
  - GENERAL PHYSICAL HEALTH DETERIORATION [None]
  - MUSCLE SPASMS [None]
  - DIVERTICULITIS [None]
  - FALL [None]
